FAERS Safety Report 11651433 (Version 3)
Quarter: 2015Q4

REPORT INFORMATION
  Report Type: Spontaneous
  Country: RS (occurrence: RS)
  Receive Date: 20151022
  Receipt Date: 20151221
  Transmission Date: 20160304
  Serious: Yes (Other)
  Sender: FDA-Public Use
  Company Number: RS-009507513-1510SRB007426

PATIENT
  Age: 52 Year
  Sex: Male
  Weight: 70 kg

DRUGS (9)
  1. HETASORB [Concomitant]
     Dosage: TOTAL DAILY DOSE: 500 ML
     Route: 042
  2. PROPOFOL. [Concomitant]
     Active Substance: PROPOFOL
     Dosage: TOTAL DAILY DOSE: 270 MG
     Route: 042
  3. MIDAZOLAM [Concomitant]
     Active Substance: MIDAZOLAM\MIDAZOLAM HYDROCHLORIDE
     Dosage: TOTAL DAILY DOSE: 10 MG
     Route: 042
  4. CEFUROXIME. [Concomitant]
     Active Substance: CEFUROXIME
     Dosage: TOTAL DAILY DOSE: 1.5 G
     Route: 042
  5. ELECTROLYTES (UNSPECIFIED) [Concomitant]
     Active Substance: ELECTROLYTES NOS
     Dosage: UNK
     Route: 042
  6. ESMERON [Suspect]
     Active Substance: ROCURONIUM BROMIDE
     Indication: SUBDURAL HAEMATOMA
     Dosage: 50 MG, THEN 20MG, THEN CONTINUOUSLY 30MG PER HOUR;  TOTAL DAILY DOSE 135MG; 0.4 MG PER KG PER MINUTE
     Route: 042
     Dates: start: 20151008, end: 20151008
  7. FENTANYL. [Concomitant]
     Active Substance: FENTANYL
     Dosage: TOTAL DAILY DOSE: 400 MICROGRAM
     Route: 042
  8. BLOOD CELLS, RED [Concomitant]
     Active Substance: HUMAN BLOOD CELLS
     Dosage: TOTAL DAILY DOSE: 310 ML
     Route: 042
  9. MANNITOL. [Concomitant]
     Active Substance: MANNITOL
     Dosage: TOTAL DAILY DOSE: 250 ML
     Route: 042

REACTIONS (3)
  - Drug effect decreased [Unknown]
  - Product quality issue [Unknown]
  - Product use issue [Unknown]

NARRATIVE: CASE EVENT DATE: 20151008
